FAERS Safety Report 18716617 (Version 2)
Quarter: 2021Q1

REPORT INFORMATION
  Report Type: Report from Study
  Country: CA (occurrence: CA)
  Receive Date: 20210108
  Receipt Date: 20210219
  Transmission Date: 20210419
  Serious: Yes (Other)
  Sender: FDA-Public Use
  Company Number: NVSC2020CA312024

PATIENT
  Sex: Male
  Weight: 18.1 kg

DRUGS (16)
  1. DABRAFENIB [Suspect]
     Active Substance: DABRAFENIB
     Dosage: 30 MG, BID
     Route: 048
     Dates: start: 20191015, end: 20200204
  2. TRAMETINIB [Suspect]
     Active Substance: TRAMETINIB
     Indication: LANGERHANS^ CELL HISTIOCYTOSIS
     Dosage: 0.41 MG/ 8.2 MLS 0.05 MG/ML SUSPENSION
     Route: 048
     Dates: start: 20191126
  3. TRAMETINIB [Suspect]
     Active Substance: TRAMETINIB
     Dosage: UNK
     Route: 048
     Dates: start: 20200211, end: 20200420
  4. TRAMETINIB [Suspect]
     Active Substance: TRAMETINIB
     Dosage: 0.21 MG, QD
     Route: 048
     Dates: start: 20200604, end: 20200609
  5. MULTIVITAMINS [Concomitant]
     Active Substance: VITAMINS
     Indication: PRODUCT USED FOR UNKNOWN INDICATION
     Dosage: UNK
     Route: 065
  6. TRAMETINIB [Suspect]
     Active Substance: TRAMETINIB
     Dosage: UNK
     Route: 048
     Dates: start: 20200423, end: 20200515
  7. ASA [Concomitant]
     Active Substance: ASPIRIN
     Indication: PRODUCT USED FOR UNKNOWN INDICATION
     Dosage: UNK
     Route: 065
  8. DABRAFENIB [Suspect]
     Active Substance: DABRAFENIB
     Dosage: UNK
     Route: 048
     Dates: start: 20200211, end: 20200420
  9. DABRAFENIB [Suspect]
     Active Substance: DABRAFENIB
     Dosage: 20 MG, BID
     Route: 048
     Dates: start: 20200428, end: 20200515
  10. DABRAFENIB [Suspect]
     Active Substance: DABRAFENIB
     Dosage: 20 MG, BID
     Route: 048
     Dates: start: 20200630
  11. TACROLIMUS. [Concomitant]
     Active Substance: TACROLIMUS
     Indication: PRODUCT USED FOR UNKNOWN INDICATION
     Dosage: UNK
     Route: 065
  12. TRAMETINIB [Suspect]
     Active Substance: TRAMETINIB
     Dosage: 0.21 MG/ 4.2 MLS 0.05 MG/ML SUSPENSION
     Route: 048
     Dates: start: 20200107, end: 20200204
  13. DABRAFENIB [Suspect]
     Active Substance: DABRAFENIB
     Indication: LANGERHANS^ CELL HISTIOCYTOSIS
     Dosage: UNK
     Route: 048
     Dates: start: 20190912, end: 20190923
  14. KAYEXALATE [Concomitant]
     Active Substance: SODIUM POLYSTYRENE SULFONATE
     Indication: PRODUCT USED FOR UNKNOWN INDICATION
     Dosage: UNK
     Route: 065
  15. DDAVP [Concomitant]
     Active Substance: DESMOPRESSIN ACETATE
     Indication: PRODUCT USED FOR UNKNOWN INDICATION
     Dosage: UNK
     Route: 065
  16. VITAMIN D [Concomitant]
     Active Substance: VITAMIN D NOS
     Indication: PRODUCT USED FOR UNKNOWN INDICATION
     Dosage: UNK
     Route: 065

REACTIONS (4)
  - Proteinuria [Recovering/Resolving]
  - Febrile neutropenia [Recovering/Resolving]
  - Warm type haemolytic anaemia [Recovering/Resolving]
  - Transaminases increased [Unknown]
